FAERS Safety Report 8065763-5 (Version None)
Quarter: 2012Q1

REPORT INFORMATION
  Report Type: 
  Country: None (occurrence: None)
  Receive Date: 20120124
  Receipt Date: 20120119
  Transmission Date: 20120608
  Serious: Yes (Other)
  Sender: FDA-Public Use
  Company Number: US-PFIZER INC-2011019667

PATIENT
  Sex: Female
  Weight: 54.422 kg

DRUGS (5)
  1. LAMICTAL [Suspect]
     Indication: BIPOLAR DISORDER
     Dosage: 100 MG, 1X/DAY
     Route: 048
     Dates: start: 20100901
  2. GEODON [Suspect]
     Indication: SCHIZOPHRENIA
     Dosage: 100 MG, 2X/DAY
     Dates: start: 20100101, end: 20110125
  3. TRAMADOL [Concomitant]
     Indication: BACK PAIN
     Dosage: 100 MG, EVERY 4 HRS
     Route: 048
  4. ZOLOFT [Concomitant]
     Indication: BIPOLAR DISORDER
     Dosage: 100 MG, 2X/DAY
     Route: 048
  5. LYRICA [Concomitant]
     Indication: FIBROMYALGIA
     Dosage: 50 MG, EVERY 4 HRS
     Route: 048

REACTIONS (9)
  - PSYCHOTIC DISORDER [None]
  - GAIT DISTURBANCE [None]
  - MYDRIASIS [None]
  - TREMOR [None]
  - DEPRESSION [None]
  - SUICIDAL IDEATION [None]
  - HEADACHE [None]
  - HALLUCINATION [None]
  - SOMNOLENCE [None]
